FAERS Safety Report 16568808 (Version 5)
Quarter: 2019Q4

REPORT INFORMATION
  Report Type: Spontaneous
  Country: SE (occurrence: SE)
  Receive Date: 20190713
  Receipt Date: 20191218
  Transmission Date: 20200122
  Serious: Yes (Hospitalization, Other)
  Sender: FDA-Public Use
  Company Number: PHHY2019SE158727

PATIENT
  Age: 29 Year
  Sex: Female

DRUGS (4)
  1. QUETIAPINE. [Suspect]
     Active Substance: QUETIAPINE
     Indication: ANXIETY
     Dosage: UNK
     Route: 065
  2. PREGABALIN. [Suspect]
     Active Substance: PREGABALIN
     Indication: PRODUCT USED FOR UNKNOWN INDICATION
     Dosage: UNK
     Route: 065
  3. PREGABALIN. [Suspect]
     Active Substance: PREGABALIN
     Indication: OVERDOSE
  4. ALCOHOL. [Suspect]
     Active Substance: ALCOHOL
     Indication: PRODUCT USED FOR UNKNOWN INDICATION
     Dosage: UNK
     Route: 065

REACTIONS (10)
  - Thrombotic thrombocytopenic purpura [Recovered/Resolved with Sequelae]
  - Hypoaesthesia [Recovered/Resolved]
  - Cerebral infarction [Recovered/Resolved with Sequelae]
  - Product use in unapproved indication [Unknown]
  - Overdose [Recovered/Resolved]
  - Blood creatinine increased [Recovered/Resolved]
  - Platelet count decreased [Recovered/Resolved]
  - Condition aggravated [Recovered/Resolved]
  - Abdominal pain [Recovered/Resolved]
  - Microangiopathy [Unknown]
